FAERS Safety Report 24989584 (Version 5)
Quarter: 2025Q2

REPORT INFORMATION
  Report Type: Report from Study
  Country: CA (occurrence: CA)
  Receive Date: 20250220
  Receipt Date: 20250409
  Transmission Date: 20250716
  Serious: Yes (Other)
  Sender: UCB
  Company Number: CA-UCBSA-2024065540

PATIENT
  Sex: Female

DRUGS (10)
  1. CERTOLIZUMAB PEGOL [Suspect]
     Active Substance: CERTOLIZUMAB PEGOL
     Indication: Rheumatoid arthritis
     Dosage: 200 MILLIGRAM, EV 2 WEEKS(QOW)
     Route: 058
     Dates: start: 20241113
  2. CORTISONE [Suspect]
     Active Substance: CORTISONE
     Indication: Rheumatoid arthritis
  3. FLUVASTATIN [Concomitant]
     Active Substance: FLUVASTATIN SODIUM
     Indication: Product used for unknown indication
  4. VITAMIN B12 [Concomitant]
     Active Substance: CYANOCOBALAMIN
     Indication: Product used for unknown indication
  5. CALCIUM LIQUID FOR BABY [Concomitant]
     Indication: Product used for unknown indication
  6. ALENDRONATE [Concomitant]
     Active Substance: ALENDRONATE SODIUM
     Indication: Product used for unknown indication
  7. METOPROLOL [Concomitant]
     Active Substance: METOPROLOL
     Indication: Product used for unknown indication
  8. APIXABAN [Concomitant]
     Active Substance: APIXABAN
     Indication: Product used for unknown indication
  9. PANTOPRAZOLE [Concomitant]
     Active Substance: PANTOPRAZOLE
     Indication: Product used for unknown indication
  10. ATIVAN [Concomitant]
     Active Substance: LORAZEPAM
     Indication: Product used for unknown indication

REACTIONS (12)
  - Rheumatoid arthritis [Recovering/Resolving]
  - Arthralgia [Not Recovered/Not Resolved]
  - Ankle deformity [Not Recovered/Not Resolved]
  - Rash erythematous [Recovering/Resolving]
  - Dyspnoea [Recovered/Resolved]
  - Nail infection [Recovering/Resolving]
  - Hordeolum [Recovering/Resolving]
  - Hot flush [Recovered/Resolved]
  - Anxiety [Recovering/Resolving]
  - Drug ineffective [Unknown]
  - Off label use [Unknown]
  - Product dose omission issue [Unknown]

NARRATIVE: CASE EVENT DATE: 20240101
